FAERS Safety Report 9750808 (Version 2)
Quarter: 2013Q4

REPORT INFORMATION
  Report Type: Spontaneous
  Country: JP (occurrence: JP)
  Receive Date: 20131212
  Receipt Date: 20131220
  Transmission Date: 20140711
  Serious: Yes (Death)
  Sender: FDA-Public Use
  Company Number: JP-BAXTER-2013BAX049560

PATIENT
  Sex: Male
  Weight: 50 kg

DRUGS (3)
  1. DIANEAL-N PD-4 2.5 PD SOLUTION [Suspect]
     Indication: RENAL FAILURE CHRONIC
     Route: 033
     Dates: start: 20120225, end: 20131213
  2. DIANEAL-N PD-4 2.5 PD SOLUTION [Suspect]
     Route: 033
     Dates: start: 20120225, end: 20131213
  3. EXTRANEAL [Suspect]
     Indication: RENAL FAILURE CHRONIC
     Route: 033
     Dates: start: 20120225, end: 20131213

REACTIONS (1)
  - Marasmus [Fatal]
